FAERS Safety Report 6913918-2 (Version None)
Quarter: 2010Q3

REPORT INFORMATION
  Report Type: 
  Country: None (occurrence: None)
  Receive Date: 20100809
  Receipt Date: 20100728
  Transmission Date: 20110219
  Serious: Yes (Other)
  Sender: FDA-Public Use
  Company Number: US-WYE-H16505110

PATIENT
  Sex: Female

DRUGS (4)
  1. EFFEXOR XR [Suspect]
     Indication: DEPRESSION
     Dosage: UNKNOWN
  2. COUMADIN [Interacting]
     Dosage: UNKNOWN
  3. ABILIFY [Interacting]
     Dosage: UNKNOWN
  4. ATIVAN [Interacting]
     Dosage: UNKNOWN

REACTIONS (7)
  - CARDIAC DISORDER [None]
  - CONSTIPATION [None]
  - DRUG INTERACTION [None]
  - DRY MOUTH [None]
  - HYPOTENSION [None]
  - IRRITABLE BOWEL SYNDROME [None]
  - NONSPECIFIC REACTION [None]
